FAERS Safety Report 7409480-0 (Version None)
Quarter: 2011Q2

REPORT INFORMATION
  Report Type: 
  Country: None (occurrence: None)
  Receive Date: 20110412
  Receipt Date: 20110405
  Transmission Date: 20111010
  Serious: Yes (Disabling)
  Sender: FDA-Public Use
  Company Number: FR-B.I. PHARMACEUTICALS,INC./RIDGEFIELD-2011-BP-10398YA

PATIENT
  Sex: Male

DRUGS (2)
  1. TAMSULOSIN HCL [Suspect]
     Route: 065
     Dates: start: 19980101
  2. TAMSULOSIN HCL [Suspect]
     Route: 065

REACTIONS (5)
  - FEAR OF CROWDED PLACES [None]
  - HEAD DISCOMFORT [None]
  - DIZZINESS [None]
  - BALANCE DISORDER [None]
  - ORTHOSTATIC HYPOTENSION [None]
